FAERS Safety Report 5960814-3 (Version None)
Quarter: 2008Q4

REPORT INFORMATION
  Report Type: 
  Country: None (occurrence: None)
  Receive Date: 20081121
  Receipt Date: 20081112
  Transmission Date: 20090506
  Serious: Yes (Death, Hospitalization, Other)
  Sender: FDA-Public Use
  Company Number: NG-RANBAXY-2008RR-19279

PATIENT
  Age: 26 Day
  Sex: Male

DRUGS (2)
  1. PENTAZOCINE LACTATE [Suspect]
     Dosage: 0.5 MG/KG, TID
  2. PENTAZOCINE LACTATE [Suspect]
     Dosage: 2.6 MG, UNK
     Route: 030

REACTIONS (1)
  - RESPIRATORY DEPRESSION [None]
